FAERS Safety Report 14844015 (Version 1)
Quarter: 2018Q2

REPORT INFORMATION
  Report Type: Other
  Country: US (occurrence: IT)
  Receive Date: 20180503
  Receipt Date: 20180503
  Transmission Date: 20180711
  Serious: Yes (Hospitalization)
  Sender: FDA-Public Use
  Company Number: IT-BRECKENRIDGE PHARMACEUTICAL, INC.-2047131

PATIENT
  Age: 85 Year
  Sex: Female

DRUGS (11)
  1. LEVOTHYROXINE. [Concomitant]
     Active Substance: LEVOTHYROXINE
  2. IRBESARTAN AND HYDROCHLOROTHIAZIDE [Concomitant]
     Active Substance: HYDROCHLOROTHIAZIDE\IRBESARTAN
  3. ATORVASTATIN CALCIUM. [Concomitant]
     Active Substance: ATORVASTATIN CALCIUM
  4. VENLAFAXINE [Concomitant]
     Active Substance: VENLAFAXINE HYDROCHLORIDE
  5. IRON SUPPLEMENT [Concomitant]
     Active Substance: IRON
  6. QUETIAPINE. [Concomitant]
     Active Substance: QUETIAPINE
  7. OMEPRAZOLE. [Suspect]
     Active Substance: OMEPRAZOLE
  8. BUPROPRIONE [Concomitant]
  9. CLOPIDOGREL [Concomitant]
     Active Substance: CLOPIDOGREL BISULFATE
  10. PAROXETINE. [Concomitant]
     Active Substance: PAROXETINE
  11. CARVEDILOL. [Concomitant]
     Active Substance: CARVEDILOL

REACTIONS (2)
  - Dehydration [None]
  - Fall [None]
